FAERS Safety Report 11112758 (Version 2)
Quarter: 2015Q3

REPORT INFORMATION
  Report Type: Spontaneous
  Country: US (occurrence: US)
  Receive Date: 20150514
  Receipt Date: 20150720
  Transmission Date: 20151125
  Serious: No
  Sender: FDA-Public Use
  Company Number: US-GILEAD-2015-0152151

PATIENT
  Sex: Female

DRUGS (1)
  1. HARVONI [Suspect]
     Active Substance: LEDIPASVIR\SOFOSBUVIR
     Indication: PRODUCT USED FOR UNKNOWN INDICATION
     Route: 065

REACTIONS (9)
  - Hyperaesthesia [Unknown]
  - Alopecia [Unknown]
  - Stomatitis [Unknown]
  - Headache [Unknown]
  - Nightmare [Unknown]
  - Nausea [Unknown]
  - Mental impairment [Unknown]
  - Dizziness [Unknown]
  - Fatigue [Unknown]
